FAERS Safety Report 7583284-0 (Version None)
Quarter: 2011Q2

REPORT INFORMATION
  Report Type: 
  Country: None (occurrence: None)
  Receive Date: 20110627
  Receipt Date: 20110627
  Transmission Date: 20111010
  Serious: Yes (Life-Threatening, Hospitalization)
  Sender: FDA-Public Use
  Company Number: None

PATIENT
  Age: 45 Year
  Sex: Male

DRUGS (2)
  1. LOMUSTINE [Suspect]
  2. TEMODAR [Suspect]
     Indication: GLIOBLASTOMA MULTIFORME

REACTIONS (2)
  - THROMBOCYTOPENIA [None]
  - RECTAL HAEMORRHAGE [None]
